FAERS Safety Report 8396910-3 (Version None)
Quarter: 2012Q2

REPORT INFORMATION
  Report Type: 
  Country: None (occurrence: None)
  Receive Date: 20120530
  Receipt Date: 20120515
  Transmission Date: 20120825
  Serious: No
  Sender: FDA-Public Use
  Company Number: US-ASTRAZENECA-2012SE31475

PATIENT
  Sex: Female

DRUGS (1)
  1. TENORMIN [Suspect]
     Route: 048

REACTIONS (2)
  - URTICARIA [None]
  - PRURITUS [None]
